FAERS Safety Report 5815705-5 (Version None)
Quarter: 2008Q3

REPORT INFORMATION
  Report Type: 
  Country: None (occurrence: None)
  Receive Date: 20080721
  Receipt Date: 20080708
  Transmission Date: 20090109
  Serious: Yes (Life-Threatening, Hospitalization)
  Sender: FDA-Public Use
  Company Number: US-KINGPHARMUSA00001-K200800783

PATIENT

DRUGS (9)
  1. ALTACE [Suspect]
     Indication: ISCHAEMIC CARDIOMYOPATHY
     Dosage: 1.25 MG, QD
     Route: 048
     Dates: start: 20080320, end: 20080412
  2. METHOTREXATE [Suspect]
     Indication: RHEUMATOID ARTHRITIS
     Dosage: 15 MG, QW
     Route: 048
     Dates: start: 20040101, end: 20080412
  3. INIPOMP /01263201/ [Suspect]
     Indication: PROPHYLAXIS
     Dosage: 20 MG, QD
     Route: 048
  4. KARDEGIC                           /00002703/ [Suspect]
     Indication: PROPHYLAXIS
  5. CORTANCYL [Concomitant]
     Indication: RHEUMATOID ARTHRITIS
     Dosage: 3 MG, UNK
     Route: 048
  6. LASIX [Concomitant]
     Indication: ISCHAEMIC CARDIOMYOPATHY
     Dosage: 20 MG, UNK
     Route: 048
  7. BISOPROLOL FUMARATE [Concomitant]
     Indication: ISCHAEMIC CARDIOMYOPATHY
     Dosage: 2.5 MG, UNK
     Route: 048
     Dates: start: 20080331
  8. ATHYMIL [Concomitant]
     Indication: DEPRESSION
     Dosage: 30 MG, UNK
     Route: 048
     Dates: end: 20080412
  9. DEROXAT [Concomitant]
     Indication: DEPRESSION
     Dosage: 20 MG, UNK
     Route: 048

REACTIONS (10)
  - BIOPSY BONE MARROW ABNORMAL [None]
  - BLOOD ALBUMIN DECREASED [None]
  - FOLATE DEFICIENCY [None]
  - MALNUTRITION [None]
  - MOUTH ULCERATION [None]
  - PANCYTOPENIA [None]
  - PURPURA [None]
  - PYREXIA [None]
  - SEPSIS [None]
  - STEVENS-JOHNSON SYNDROME [None]
